FAERS Safety Report 11805111 (Version 1)
Quarter: 2015Q4

REPORT INFORMATION
  Report Type: Spontaneous
  Country: US (occurrence: US)
  Receive Date: 20151206
  Receipt Date: 20151206
  Transmission Date: 20160305
  Serious: No
  Sender: FDA-Public Use
  Company Number: US-ASTRAZENECA-2013SE80010

PATIENT
  Age: 64 Year
  Sex: Female
  Weight: 66 kg

DRUGS (6)
  1. AMARYL [Suspect]
     Active Substance: GLIMEPIRIDE
     Route: 065
  2. LANTUS [Concomitant]
     Active Substance: INSULIN GLARGINE
  3. BYETTA [Suspect]
     Active Substance: EXENATIDE
     Route: 065
  4. NEURONTIN [Suspect]
     Active Substance: GABAPENTIN
     Route: 065
  5. BYDUREON [Suspect]
     Active Substance: EXENATIDE
     Indication: TYPE 2 DIABETES MELLITUS
     Route: 058
  6. BYETTA [Suspect]
     Active Substance: EXENATIDE
     Route: 065

REACTIONS (8)
  - Blood glucose increased [Unknown]
  - Diabetic neuropathy [Unknown]
  - Injection site pain [Unknown]
  - Blood glucose decreased [Unknown]
  - Drug prescribing error [Unknown]
  - Weight increased [Unknown]
  - Tremor [Unknown]
  - Intentional product misuse [Unknown]
